FAERS Safety Report 19322042 (Version 2)
Quarter: 2021Q2

REPORT INFORMATION
  Report Type: Spontaneous
  Country: LI (occurrence: CH)
  Receive Date: 20210528
  Receipt Date: 20210609
  Transmission Date: 20210717
  Serious: Yes (Hospitalization, Other)
  Sender: FDA-Public Use
  Company Number: LI-ORGANON-O2105CHE002111

PATIENT
  Sex: Female

DRUGS (1)
  1. LUKAIR [Suspect]
     Active Substance: MONTELUKAST SODIUM
     Dosage: UNK

REACTIONS (4)
  - Bulimia nervosa [Unknown]
  - Suicidal ideation [Unknown]
  - Intentional self-injury [Unknown]
  - Depression [Unknown]
